FAERS Safety Report 10524843 (Version 1)
Quarter: 2014Q4

REPORT INFORMATION
  Report Type: Spontaneous
  Country: US (occurrence: US)
  Receive Date: 20141017
  Receipt Date: 20141017
  Transmission Date: 20150528
  Serious: Yes (Other)
  Sender: FDA-Public Use
  Company Number: US-B.I. PHARMACEUTICALS,INC./RIDGEFIELD-2014-BI-48651BP

PATIENT
  Age: 82 Year
  Sex: Male
  Weight: 79.54 kg

DRUGS (20)
  1. PRADAXA [Suspect]
     Active Substance: DABIGATRAN ETEXILATE MESYLATE
     Indication: ATRIAL FIBRILLATION
     Dosage: 300 MG
     Route: 048
     Dates: start: 201210
  2. MULTIVITAMIN [Concomitant]
     Active Substance: VITAMINS
     Indication: VITAMIN SUPPLEMENTATION
     Dosage: 1 ANZ
     Route: 048
  3. VITAMIN C [Concomitant]
     Active Substance: ASCORBIC ACID
     Indication: VITAMIN SUPPLEMENTATION
     Dosage: 600 MG
     Route: 048
  4. VITAMIN D [Concomitant]
     Active Substance: CHOLECALCIFEROL
     Indication: VITAMIN SUPPLEMENTATION
     Dosage: 1000 MG
     Route: 048
  5. XANAX [Concomitant]
     Active Substance: ALPRAZOLAM
     Indication: ANXIETY
     Dosage: 2 MG
     Route: 048
     Dates: start: 2011
  6. SYNTHROID [Concomitant]
     Active Substance: LEVOTHYROXINE SODIUM
     Indication: HYPOTHYROIDISM
     Dosage: 0.2 MG
     Route: 048
     Dates: start: 1984
  7. ASPIRIN. [Concomitant]
     Active Substance: ASPIRIN
     Indication: CARDIOVASCULAR EVENT PROPHYLAXIS
     Dosage: 81 MG
     Route: 048
  8. CATAPRES TTS 3 [Concomitant]
     Indication: VASODILATATION
     Dosage: 0.0429 MG
     Route: 065
  9. DIGOXIN. [Concomitant]
     Active Substance: DIGOXIN
     Indication: ARRHYTHMIA
     Dosage: 0.125 MG
     Route: 048
     Dates: start: 2011
  10. OMEGA 3 [Concomitant]
     Active Substance: OMEGA-3 FATTY ACIDS
     Indication: SUPPLEMENTATION THERAPY
     Dosage: 2400 MG
     Route: 048
  11. ATENOLOL. [Concomitant]
     Active Substance: ATENOLOL
     Indication: ATRIAL FIBRILLATION
     Dosage: 25 MG
     Route: 048
     Dates: start: 2010
  12. DIOVAN [Concomitant]
     Active Substance: VALSARTAN
     Indication: ATRIAL FIBRILLATION
     Dosage: DOSE PER APPLICATION: 320 MG-12.5 MG; DAILY DOSE: 320 MG-12.5 MG
     Route: 048
     Dates: start: 2010
  13. FLOMAX [Concomitant]
     Active Substance: TAMSULOSIN HYDROCHLORIDE
     Indication: PROSTATOMEGALY
     Dosage: 0.8 MG
     Route: 048
     Dates: start: 2010
  14. VITAMIN B [Concomitant]
     Active Substance: VITAMIN B
     Indication: VITAMIN SUPPLEMENTATION
     Dosage: 1000 U
     Route: 048
  15. VITAMIN E [Concomitant]
     Active Substance: .ALPHA.-TOCOPHEROL
     Indication: VITAMIN SUPPLEMENTATION
     Dosage: 1 ANZ
     Route: 048
  16. POTASSIUM [Concomitant]
     Active Substance: POTASSIUM
     Indication: BLOOD POTASSIUM DECREASED
     Dosage: 20 MG
     Route: 048
     Dates: start: 2012
  17. LASIX [Concomitant]
     Active Substance: FUROSEMIDE
     Indication: FLUID RETENTION
     Dosage: 20 MG
     Route: 048
     Dates: start: 2008
  18. VYTORIN [Concomitant]
     Active Substance: EZETIMIBE\SIMVASTATIN
     Indication: BLOOD CHOLESTEROL INCREASED
     Dosage: DAILY DOSE: 1/2 TABLET
     Route: 048
  19. VIT B 12 [Concomitant]
     Indication: NEUROPATHY PERIPHERAL
     Dosage: 1 ANZ
     Route: 048
  20. CALCIUM [Concomitant]
     Active Substance: CALCIUM
     Indication: SUPPLEMENTATION THERAPY
     Dosage: 1 ANZ
     Route: 048

REACTIONS (3)
  - Squamous cell carcinoma of skin [Not Recovered/Not Resolved]
  - Tumour haemorrhage [Recovered/Resolved]
  - Basal cell carcinoma [Not Recovered/Not Resolved]

NARRATIVE: CASE EVENT DATE: 20140924
